FAERS Safety Report 11985590 (Version 1)
Quarter: 2016Q1

REPORT INFORMATION
  Report Type: Spontaneous
  Country: GB (occurrence: GB)
  Receive Date: 20160201
  Receipt Date: 20160201
  Transmission Date: 20160526
  Serious: Yes (Other)
  Sender: FDA-Public Use
  Company Number: GB-BAUSCH-BL-2016-002459

PATIENT
  Age: 88 Year
  Sex: Female

DRUGS (1)
  1. TETRABENAZINE. [Suspect]
     Active Substance: TETRABENAZINE
     Indication: ESSENTIAL TREMOR
     Route: 065

REACTIONS (2)
  - Drug prescribing error [Unknown]
  - Cerebrovascular accident [Unknown]
